FAERS Safety Report 14277062 (Version 3)
Quarter: 2018Q1

REPORT INFORMATION
  Report Type: Report from Study
  Country: None (occurrence: RO)
  Receive Date: 20171212
  Receipt Date: 20180202
  Transmission Date: 20180508
  Serious: Yes (Hospitalization)
  Sender: FDA-Public Use
  Company Number: RO-ABBVIE-17K-135-2143989-00

PATIENT
  Age: 61 Year
  Sex: Male

DRUGS (3)
  1. DUODOPA [Suspect]
     Active Substance: CARBIDOPA\LEVODOPA
     Indication: PARKINSON^S DISEASE
     Dosage: 16/24, MD15.2, CR4.4, ED1.5
     Route: 050
     Dates: start: 20140703
  2. DUODOPA [Suspect]
     Active Substance: CARBIDOPA\LEVODOPA
     Dosage: DM- 4 ML, CR  1.8 ML/H, ED  1 ML
     Route: 050
     Dates: end: 20171207
  3. OMNIC [Concomitant]
     Active Substance: TAMSULOSIN HYDROCHLORIDE
     Indication: PROSTATIC ADENOMA
     Route: 048

REACTIONS (7)
  - Stoma site hypergranulation [Not Recovered/Not Resolved]
  - Stoma site hypergranulation [Recovered/Resolved]
  - Stoma site erythema [Not Recovered/Not Resolved]
  - Device issue [Not Recovered/Not Resolved]
  - Embedded device [Recovering/Resolving]
  - Stoma site hypergranulation [Recovered/Resolved]
  - Stoma site haemorrhage [Not Recovered/Not Resolved]

NARRATIVE: CASE EVENT DATE: 20171020
